FAERS Safety Report 12887988 (Version 3)
Quarter: 2017Q1

REPORT INFORMATION
  Report Type: Report from Study
  Country: US (occurrence: US)
  Receive Date: 20161027
  Receipt Date: 20170123
  Transmission Date: 20170428
  Serious: Yes (Hospitalization, Other)
  Sender: FDA-Public Use
  Company Number: US-AMGEN-USASL2016146796

PATIENT
  Age: 41 Year
  Sex: Female

DRUGS (2)
  1. NPLATE [Suspect]
     Active Substance: ROMIPLOSTIM
     Indication: IMMUNE THROMBOCYTOPENIC PURPURA
     Dosage: 0.2 ML, QWK
     Route: 065
     Dates: start: 201609
  2. NPLATE [Suspect]
     Active Substance: ROMIPLOSTIM
     Dosage: 100 MUG, QWK
     Route: 065

REACTIONS (7)
  - Muscle tightness [Unknown]
  - Musculoskeletal pain [Unknown]
  - Pulmonary embolism [Unknown]
  - Deep vein thrombosis [Recovering/Resolving]
  - Platelet count abnormal [Unknown]
  - Disturbance in attention [Unknown]
  - Back pain [Unknown]

NARRATIVE: CASE EVENT DATE: 20161010
